FAERS Safety Report 18594556 (Version 1)
Quarter: 2020Q4

REPORT INFORMATION
  Report Type: Spontaneous
  Country: US (occurrence: US)
  Receive Date: 20201208
  Receipt Date: 20201208
  Transmission Date: 20210114
  Serious: Yes (Hospitalization, Disabling)
  Sender: FDA-Public Use
  Company Number: None

PATIENT
  Age: 26 Year
  Sex: Male
  Weight: 72 kg

DRUGS (7)
  1. METOCLOPRAMIDE. [Suspect]
     Active Substance: METOCLOPRAMIDE
     Indication: GASTRITIS
     Dosage: ?          QUANTITY:60 TABLET(S);?
     Route: 048
     Dates: start: 20200813, end: 20200813
  2. SUCRALFATE. [Concomitant]
     Active Substance: SUCRALFATE
  3. SERTRALINE [Concomitant]
     Active Substance: SERTRALINE HYDROCHLORIDE
  4. ATIVAN [Concomitant]
     Active Substance: LORAZEPAM
  5. VISTARIL [Concomitant]
     Active Substance: HYDROXYZINE PAMOATE
  6. HYDROXYZINE HCL [Concomitant]
     Active Substance: HYDROXYZINE HYDROCHLORIDE
  7. OMEPRAZOLE. [Concomitant]
     Active Substance: OMEPRAZOLE

REACTIONS (16)
  - Depression [None]
  - Loss of employment [None]
  - Fear [None]
  - Suicidal ideation [None]
  - Weight decreased [None]
  - Muscle twitching [None]
  - Depersonalisation/derealisation disorder [None]
  - Panic attack [None]
  - Therapeutic product effect incomplete [None]
  - Quality of life decreased [None]
  - Anxiety [None]
  - Insomnia [None]
  - Akathisia [None]
  - Headache [None]
  - Feeling abnormal [None]
  - Morbid thoughts [None]

NARRATIVE: CASE EVENT DATE: 20200813
